FAERS Safety Report 21098119 (Version 1)
Quarter: 2022Q3

REPORT INFORMATION
  Report Type: Report from Study
  Country: US (occurrence: US)
  Receive Date: 20220719
  Receipt Date: 20220719
  Transmission Date: 20221027
  Serious: Yes (Hospitalization, Other)
  Sender: FDA-Public Use
  Company Number: US-GILEAD-2022-0589674

PATIENT
  Sex: Male

DRUGS (25)
  1. AZTREONAM LYSINE [Suspect]
     Active Substance: AZTREONAM LYSINE
     Indication: Cystic fibrosis
     Dosage: 75 MG, TID FOR 28 DAYS ON AND 28 DAYS OFF
     Route: 055
     Dates: start: 20210511
  2. SINGULAIR [Concomitant]
     Active Substance: MONTELUKAST SODIUM
  3. ZENPEP [Concomitant]
     Active Substance: PANCRELIPASE AMYLASE\PANCRELIPASE LIPASE\PANCRELIPASE PROTEASE
  4. PROPRANOLOL [Concomitant]
     Active Substance: PROPRANOLOL HYDROCHLORIDE
  5. POTASSIUM [Concomitant]
     Active Substance: POTASSIUM
  6. DIAZEPAM [Concomitant]
     Active Substance: DIAZEPAM
  7. SYMBICORT [Concomitant]
     Active Substance: BUDESONIDE\FORMOTEROL FUMARATE DIHYDRATE
  8. VIIBRYD [Concomitant]
     Active Substance: VILAZODONE HYDROCHLORIDE
  9. FLUTICASONE [Concomitant]
     Active Substance: FLUTICASONE
  10. LEVALBUTEROL [Concomitant]
     Active Substance: LEVALBUTEROL
  11. SPIRIVA [Concomitant]
     Active Substance: TIOTROPIUM BROMIDE MONOHYDRATE
  12. TOBRAMYCIN [Concomitant]
     Active Substance: TOBRAMYCIN
  13. AZITHROMYCIN [Concomitant]
     Active Substance: AZITHROMYCIN
  14. RETINOL [Concomitant]
     Active Substance: RETINOL
  15. XOPENEX [Concomitant]
     Active Substance: LEVALBUTEROL HYDROCHLORIDE
  16. URSODIOL [Concomitant]
     Active Substance: URSODIOL
  17. PULMOZYME [Concomitant]
     Active Substance: DORNASE ALFA
  18. CALCIUM [Concomitant]
     Active Substance: CALCIUM
  19. CHOLECALCIFEROL [Concomitant]
     Active Substance: CHOLECALCIFEROL
  20. MAGNESIUM [Concomitant]
     Active Substance: MAGNESIUM
  21. TRIKAFTA [Concomitant]
     Active Substance: ELEXACAFTOR\IVACAFTOR\TEZACAFTOR
  22. BETAMETHASONE [Concomitant]
     Active Substance: BETAMETHASONE
  23. SUMATRIPTAN [Concomitant]
     Active Substance: SUMATRIPTAN
  24. DOXEPIN [Concomitant]
     Active Substance: DOXEPIN
  25. GUANFACINE [Concomitant]
     Active Substance: GUANFACINE

REACTIONS (2)
  - Cystic fibrosis [Unknown]
  - Chemotherapy [Unknown]
